FAERS Safety Report 16394224 (Version 1)
Quarter: 2019Q2

REPORT INFORMATION
  Report Type: Spontaneous
  Country: SE (occurrence: SE)
  Receive Date: 20190605
  Receipt Date: 20190605
  Transmission Date: 20190711
  Serious: Yes (Hospitalization)
  Sender: FDA-Public Use
  Company Number: SE-MYLANLABS-M-EU-2009120083

PATIENT
  Sex: Male

DRUGS (6)
  1. STILNOCT [Suspect]
     Active Substance: ZOLPIDEM TARTRATE
     Indication: PANIC DISORDER
     Dosage: 10 MILLIGRAM, QD (EXPOSURE THROUGHOUT THE WHOLE PREGNANCY)
     Route: 064
     Dates: end: 20090904
  2. ANAFRANIL [Suspect]
     Active Substance: CLOMIPRAMINE HYDROCHLORIDE
     Indication: PANIC DISORDER
     Dosage: 150 MG, UNK
     Route: 064
  3. STILNOCT [Suspect]
     Active Substance: ZOLPIDEM TARTRATE
     Indication: DEPRESSION
     Dosage: 50 MG, UNK
     Route: 064
  4. LERGIGAN FORTE (PROMETHAZINE) [Suspect]
     Active Substance: PROMETHAZINE\PROMETHAZINE HYDROCHLORIDE
     Indication: PANIC DISORDER
     Dosage: 50 MILLIGRAM, QD (EXPOSURE THROUGHOUT THE WHOLE PREGNANCY)
     Route: 064
     Dates: end: 20090904
  5. ANAFRANIL [Suspect]
     Active Substance: CLOMIPRAMINE HYDROCHLORIDE
     Indication: DEPRESSION
     Dosage: 75 MILLIGRAM, QD (EXPOSURE THROUGHOUT THE WHOLE PREGNANCY)
     Route: 064
     Dates: end: 20090904
  6. LERGIGAN FORTE (PROMETHAZINE) [Suspect]
     Active Substance: PROMETHAZINE\PROMETHAZINE HYDROCHLORIDE
     Indication: DEPRESSION
     Dosage: 10 MG, UNK
     Route: 064

REACTIONS (7)
  - Apnoea [Recovered/Resolved]
  - Infantile apnoea [Recovered/Resolved]
  - Premature baby [Unknown]
  - Neonatal respiratory distress syndrome [Recovered/Resolved]
  - Bradycardia neonatal [Recovered/Resolved]
  - Oxygen saturation decreased [Recovered/Resolved]
  - Foetal exposure during pregnancy [Recovered/Resolved]

NARRATIVE: CASE EVENT DATE: 20090904
